FAERS Safety Report 5995618-9 (Version None)
Quarter: 2008Q4

REPORT INFORMATION
  Report Type: 
  Country: None (occurrence: None)
  Receive Date: 20081212
  Receipt Date: 20081204
  Transmission Date: 20090506
  Serious: Yes (Life-Threatening, Hospitalization)
  Sender: FDA-Public Use
  Company Number: US-ABBOTT-08P-163-0458475-02

PATIENT
  Sex: Male
  Weight: 86 kg

DRUGS (41)
  1. HUMIRA [Suspect]
     Indication: RHEUMATOID ARTHRITIS
     Route: 058
     Dates: start: 20010313, end: 20080512
  2. VALSARTAN [Concomitant]
     Indication: HYPERTENSION
     Route: 048
     Dates: start: 20040603, end: 20080525
  3. FERROUS GLUCONATE [Concomitant]
     Indication: ANAEMIA
     Route: 048
     Dates: start: 20041201, end: 20080525
  4. NICOTINIC ACID [Concomitant]
     Indication: VITAMIN SUPPLEMENTATION
     Route: 048
     Dates: start: 20051001, end: 20080525
  5. NICOTINIC ACID [Concomitant]
     Route: 048
     Dates: start: 20080617
  6. AMLODIPINE [Concomitant]
     Indication: HYPERTENSION
     Route: 048
     Dates: start: 19980101, end: 20080525
  7. AMLODIPINE [Concomitant]
     Route: 048
     Dates: start: 20080617
  8. OMEPRAZOLE [Concomitant]
     Indication: ACQUIRED OESOPHAGEAL WEB
     Route: 048
     Dates: start: 20001007, end: 20080526
  9. OMEPRAZOLE [Concomitant]
     Route: 048
     Dates: start: 20080617
  10. SILDENAFIL CITRATE [Concomitant]
     Indication: ERECTILE DYSFUNCTION
     Route: 048
     Dates: start: 19980101
  11. DIAZEPAM [Concomitant]
     Indication: INSOMNIA
     Route: 048
     Dates: start: 19820101, end: 20080525
  12. SULFASALAZINE [Concomitant]
     Indication: CROHN'S DISEASE
     Route: 048
     Dates: start: 19900101, end: 20080124
  13. SULFASALAZINE [Concomitant]
     Route: 048
     Dates: start: 20080125, end: 20080305
  14. SULFASALAZINE [Concomitant]
     Route: 048
     Dates: start: 20080520, end: 20080525
  15. SULFASALAZINE [Concomitant]
     Route: 048
     Dates: start: 20080628
  16. TOCOPHEROL CONCENTRATE CAP [Concomitant]
     Indication: VITAMIN SUPPLEMENTATION
     Route: 048
     Dates: start: 19950101, end: 20080525
  17. BETACAROTENE [Concomitant]
     Indication: MEDICAL DIET
     Route: 048
     Dates: start: 20000101, end: 20080525
  18. BETACAROTENE [Concomitant]
     Route: 048
     Dates: start: 20080617
  19. SERENOA REPENS [Concomitant]
     Indication: PHYTOTHERAPY
     Route: 048
     Dates: start: 20000601, end: 20080525
  20. SERENOA REPENS [Concomitant]
     Route: 048
     Dates: start: 20080617
  21. FISH OIL [Concomitant]
     Indication: MEDICAL DIET
     Route: 048
     Dates: start: 20000101, end: 20080525
  22. FISH OIL [Concomitant]
     Route: 048
     Dates: start: 20080617
  23. CALCIUM W/VITAMIN D NOS [Concomitant]
     Indication: MINERAL SUPPLEMENTATION
     Route: 048
     Dates: start: 19970101, end: 20080525
  24. MULTI-VITAMIN [Concomitant]
     Indication: VITAMIN SUPPLEMENTATION
     Route: 048
     Dates: start: 19800101, end: 20080525
  25. POTASSIUM GLUCONATE TAB [Concomitant]
     Indication: MINERAL SUPPLEMENTATION
     Route: 048
     Dates: start: 19950101, end: 20080525
  26. POTASSIUM GLUCONATE TAB [Concomitant]
     Route: 048
     Dates: start: 20080617
  27. ASCORBIC ACID [Concomitant]
     Indication: VITAMIN SUPPLEMENTATION
     Route: 048
     Dates: start: 19940101, end: 20080525
  28. MAGNESIUM HYDROXIDE TAB [Concomitant]
     Indication: MINERAL SUPPLEMENTATION
     Route: 048
     Dates: start: 19980101, end: 20080525
  29. PIROXICAM [Concomitant]
     Indication: RHEUMATOID ARTHRITIS
     Route: 048
     Dates: start: 19850101, end: 20080526
  30. PIROXICAM [Concomitant]
     Route: 048
     Dates: start: 20060401, end: 20060506
  31. PIROXICAM [Concomitant]
     Route: 048
     Dates: start: 20080617
  32. FOLIC ACID [Concomitant]
     Indication: RHEUMATOID ARTHRITIS
     Route: 048
     Dates: start: 19950101, end: 20080526
  33. METHOTREXATE [Concomitant]
     Indication: RHEUMATOID ARTHRITIS
     Dates: start: 20070308, end: 20070515
  34. METHOTREXATE [Concomitant]
     Dates: start: 20070522, end: 20080512
  35. METHOTREXATE [Concomitant]
  36. FUROSEMIDE [Concomitant]
     Indication: OEDEMA PERIPHERAL
     Route: 048
     Dates: start: 20070522, end: 20080525
  37. FUROSEMIDE [Concomitant]
     Route: 048
     Dates: start: 20080617
  38. BUDESONIDE [Concomitant]
     Indication: HYPERSENSITIVITY
     Route: 055
     Dates: start: 20060601, end: 20080525
  39. BUDESONIDE [Concomitant]
     Dates: start: 20080617
  40. RANITIDINE [Concomitant]
     Indication: HIATUS HERNIA
     Dates: start: 20060302, end: 20060506
  41. RANITIDINE [Concomitant]
     Route: 048
     Dates: start: 20080617

REACTIONS (1)
  - INTERSTITIAL LUNG DISEASE [None]
